FAERS Safety Report 6105629-0 (Version None)
Quarter: 2009Q1

REPORT INFORMATION
  Report Type: 
  Country: None (occurrence: None)
  Receive Date: 20090304
  Receipt Date: 20090304
  Transmission Date: 20090719
  Serious: Yes (Other)
  Sender: FDA-Public Use
  Company Number: None

PATIENT
  Age: 6 Year
  Sex: Female
  Weight: 29.4838 kg

DRUGS (1)
  1. PULMICORT FLEXHALER [Suspect]
     Indication: COUGH
     Dosage: ONE INHALE TWICE DAILY PO
     Route: 048
     Dates: start: 20081201, end: 20090303

REACTIONS (4)
  - AGGRESSION [None]
  - ANXIETY [None]
  - DYSPNOEA [None]
  - THINKING ABNORMAL [None]
